FAERS Safety Report 21063653 (Version 1)
Quarter: 2022Q3

REPORT INFORMATION
  Report Type: Spontaneous
  Country: US (occurrence: None)
  Receive Date: 20220708
  Receipt Date: 20220708
  Transmission Date: 20221027
  Serious: No
  Sender: FDA-Public Use
  Company Number: None

PATIENT
  Age: 59 Year
  Sex: Female
  Weight: 85.5 kg

DRUGS (17)
  1. PAXLOVID [Suspect]
     Active Substance: NIRMATRELVIR\RITONAVIR
     Indication: COVID-19
     Dosage: OTHER QUANTITY : 1 CAPSULE(S);?FREQUENCY : TWICE A DAY;?
     Route: 048
     Dates: start: 20220602, end: 20220604
  2. TRAZODONE [Concomitant]
     Active Substance: TRAZODONE HYDROCHLORIDE
  3. CYMBALTA [Concomitant]
     Active Substance: DULOXETINE HYDROCHLORIDE
  4. SINGULAIR [Concomitant]
     Active Substance: MONTELUKAST SODIUM
  5. NAPROXEN [Concomitant]
     Active Substance: NAPROXEN
  6. MELOXICAM [Concomitant]
     Active Substance: MELOXICAM
  7. INTEGRA F [Concomitant]
     Active Substance: ASCORBIC ACID\FERROUS ASPARTO GLYCINATE\FERROUS FUMARATE\FOLIC ACID\NIACIN
  8. CYCLOBENZAPRINE [Concomitant]
     Active Substance: CYCLOBENZAPRINE
  9. ACIPHEX [Concomitant]
     Active Substance: RABEPRAZOLE SODIUM
  10. TUMS [Concomitant]
     Active Substance: CALCIUM CARBONATE
  11. FLONASE [Concomitant]
     Active Substance: FLUTICASONE PROPIONATE
  12. bariatric fusion vitamin [Concomitant]
  13. GUAIFENESIN [Concomitant]
     Active Substance: GUAIFENESIN
  14. VITAMIN D3 [Concomitant]
     Active Substance: CHOLECALCIFEROL
  15. NOW Probiotic [Concomitant]
  16. MAGNESIUM [Concomitant]
     Active Substance: MAGNESIUM
  17. Serrapenase [Concomitant]

REACTIONS (3)
  - Dysgeusia [None]
  - Oral discomfort [None]
  - Tongue discomfort [None]

NARRATIVE: CASE EVENT DATE: 20220602
